FAERS Safety Report 9383454 (Version 1)
Quarter: 2013Q3

REPORT INFORMATION
  Report Type: Spontaneous
  Country: GB (occurrence: GB)
  Receive Date: 20130704
  Receipt Date: 20130704
  Transmission Date: 20140515
  Serious: Yes (Other)
  Sender: FDA-Public Use
  Company Number: GB-PFIZER INC-2013192495

PATIENT
  Age: 46 Year
  Sex: Female
  Weight: 93.88 kg

DRUGS (5)
  1. METRONIDAZOLE [Suspect]
     Indication: TOOTH ABSCESS
     Dosage: 8 HOUR INTERVALS WITH FOOD.
     Route: 048
     Dates: start: 20130610, end: 20130614
  2. FLUOXETINE [Concomitant]
  3. IBUPROFEN [Concomitant]
  4. PARACETAMOL [Concomitant]
  5. PAINKILLERS [Concomitant]

REACTIONS (4)
  - Palpitations [Recovering/Resolving]
  - Dyspnoea [Recovering/Resolving]
  - Headache [Recovering/Resolving]
  - Musculoskeletal stiffness [Recovering/Resolving]
